FAERS Safety Report 16606959 (Version 2)
Quarter: 2019Q3

REPORT INFORMATION
  Report Type: Report from Study
  Country: None (occurrence: GR)
  Receive Date: 20190722
  Receipt Date: 20190809
  Transmission Date: 20191004
  Serious: Yes (Hospitalization)
  Sender: FDA-Public Use
  Company Number: GR-ABBVIE-19K-066-2859167-00

PATIENT
  Age: 70 Year
  Sex: Male

DRUGS (2)
  1. GLIMBAX [Concomitant]
     Indication: PRODUCT USED FOR UNKNOWN INDICATION
     Dates: start: 20190722, end: 20190806
  2. DUODOPA [Suspect]
     Active Substance: CARBIDOPA\LEVODOPA
     Indication: PARKINSON^S DISEASE
     Dosage: MORNING DOSE: 10.0ML; CONTINUOUS DOSE: 4.5ML/H; EXTRA DOSE: 2.0ML
     Route: 050
     Dates: start: 20190527

REACTIONS (2)
  - Listless [Not Recovered/Not Resolved]
  - Prostatic operation [Recovered/Resolved]

NARRATIVE: CASE EVENT DATE: 20190718
